FAERS Safety Report 14166753 (Version 1)
Quarter: 2017Q4

REPORT INFORMATION
  Report Type: Spontaneous
  Country: US (occurrence: None)
  Receive Date: 20171106
  Receipt Date: 20171106
  Transmission Date: 20180321
  Serious: No
  Sender: FDA-Public Use
  Company Number: None

PATIENT
  Sex: Female

DRUGS (1)
  1. IBRANCE [Suspect]
     Active Substance: PALBOCICLIB
     Indication: BREAST CANCER FEMALE
     Dosage: DAILY FOR 21 DATS
     Route: 048
     Dates: start: 20170817

REACTIONS (3)
  - Neuropathy peripheral [None]
  - Alopecia [None]
  - Neuralgia [None]
